FAERS Safety Report 10290483 (Version 2)
Quarter: 2014Q3

REPORT INFORMATION
  Report Type: Spontaneous
  Country: JP (occurrence: JP)
  Receive Date: 20140710
  Receipt Date: 20140804
  Transmission Date: 20150326
  Serious: Yes (Other)
  Sender: FDA-Public Use
  Company Number: PHJP2014JP000927

PATIENT
  Age: 53 Year
  Sex: Male
  Weight: 58 kg

DRUGS (4)
  1. TEGRETOL [Suspect]
     Active Substance: CARBAMAZEPINE
     Indication: EPILEPSY
     Dosage: 800 MG, DAILY
     Route: 048
  2. PRIMIDONE. [Interacting]
     Active Substance: PRIMIDONE
     Dosage: UNK
     Route: 048
     Dates: start: 201407
  3. ALEVIATIN [Interacting]
     Active Substance: PHENYTOIN SODIUM
     Dosage: 200 MG, DAILY
     Route: 048
     Dates: start: 201407
  4. KEPPRA [Interacting]
     Active Substance: LEVETIRACETAM
     Dosage: UNK
     Route: 048

REACTIONS (4)
  - Drug ineffective [Unknown]
  - Epilepsy [Recovering/Resolving]
  - Anticonvulsant drug level decreased [Recovering/Resolving]
  - Drug interaction [Unknown]

NARRATIVE: CASE EVENT DATE: 20140707
